FAERS Safety Report 8348070-2 (Version None)
Quarter: 2012Q2

REPORT INFORMATION
  Report Type: 
  Country: None (occurrence: None)
  Receive Date: 20120509
  Receipt Date: 20120430
  Transmission Date: 20120825
  Serious: Yes (Hospitalization)
  Sender: FDA-Public Use
  Company Number: GB-ASTRAZENECA-2012SE28243

PATIENT
  Age: 35 Year
  Sex: Male

DRUGS (2)
  1. ASPIRIN [Suspect]
     Indication: BARRETT'S OESOPHAGUS
     Route: 048
  2. ESOMEPRAZOLE MAGNESIUM [Suspect]
     Indication: BARRETT'S OESOPHAGUS
     Route: 048
     Dates: start: 20071101, end: 20120220

REACTIONS (1)
  - GASTRIC HAEMORRHAGE [None]
